FAERS Safety Report 25757747 (Version 2)
Quarter: 2025Q3

REPORT INFORMATION
  Report Type: Spontaneous
  Country: US (occurrence: None)
  Receive Date: 20250903
  Receipt Date: 20250904
  Transmission Date: 20251021
  Serious: No
  Sender: ALKERMES
  Company Number: US-ALKERMES INC.-ALK-2025-002299

PATIENT

DRUGS (1)
  1. LYBALVI [Suspect]
     Active Substance: OLANZAPINE\SAMIDORPHAN L-MALATE
     Indication: Product used for unknown indication

REACTIONS (4)
  - Insomnia [Unknown]
  - Hangover [Unknown]
  - Muscle twitching [Unknown]
  - Dizziness [Unknown]
